FAERS Safety Report 23765309 (Version 1)
Quarter: 2024Q2

REPORT INFORMATION
  Report Type: Report from Study
  Country: CH (occurrence: CH)
  Receive Date: 20240420
  Receipt Date: 20240420
  Transmission Date: 20240716
  Serious: Yes (Other)
  Sender: FDA-Public Use
  Company Number: CH-TEVA-VS-3181578

PATIENT
  Sex: Female

DRUGS (1)
  1. AJOVY [Suspect]
     Active Substance: FREMANEZUMAB-VFRM
     Indication: Migraine
     Route: 058
     Dates: start: 20240405

REACTIONS (5)
  - Face oedema [Recovering/Resolving]
  - Lip oedema [Recovering/Resolving]
  - Infection [Recovering/Resolving]
  - Oral herpes [Unknown]
  - Lip blister [Recovering/Resolving]

NARRATIVE: CASE EVENT DATE: 20240405
